FAERS Safety Report 23012266 (Version 2)
Quarter: 2023Q4

REPORT INFORMATION
  Report Type: Spontaneous
  Country: US (occurrence: None)
  Receive Date: 20230930
  Receipt Date: 20231031
  Transmission Date: 20240110
  Serious: Yes (Hospitalization)
  Sender: FDA-Public Use
  Company Number: US-ROCHE-3428314

PATIENT
  Age: 72 Year
  Sex: Male

DRUGS (1)
  1. ESBRIET [Suspect]
     Active Substance: PIRFENIDONE
     Indication: Idiopathic pulmonary fibrosis
     Route: 065
     Dates: start: 202306

REACTIONS (4)
  - Vitamin C deficiency [Unknown]
  - Vitamin C decreased [Unknown]
  - Rash [Unknown]
  - Petechiae [Unknown]

NARRATIVE: CASE EVENT DATE: 20230807
